FAERS Safety Report 15630906 (Version 1)
Quarter: 2018Q4

REPORT INFORMATION
  Report Type: Spontaneous
  Country: TW (occurrence: TW)
  Receive Date: 20181119
  Receipt Date: 20181119
  Transmission Date: 20190205
  Serious: Yes (Hospitalization)
  Sender: FDA-Public Use
  Company Number: TW-AMGEN-TWNSP2018163559

PATIENT
  Age: 63 Year
  Sex: Female

DRUGS (9)
  1. APROVEL [Concomitant]
     Active Substance: IRBESARTAN
     Dosage: 1 DF, QD
  2. KENTAMIN [Concomitant]
     Dosage: 1 DF,TID
  3. DEFENSE [Concomitant]
     Active Substance: CIMETIDINE
     Dosage: 1 DF, BID
  4. FLUR DI FEN [Concomitant]
     Dosage: 40MG/12G, AS NEEDED(PRN)
  5. LYRICA [Concomitant]
     Active Substance: PREGABALIN
     Dosage: 1 DF, DAILY(QN)
  6. SALAGEN [Concomitant]
     Active Substance: PILOCARPINE HYDROCHLORIDE
     Dosage: 1 DF, BID
  7. ENBREL [Suspect]
     Active Substance: ETANERCEPT
     Indication: RHEUMATOID ARTHRITIS
     Dosage: 25 MG, BIW
     Route: 058
     Dates: start: 20091116, end: 20181105
  8. PREDNISOLONE. [Concomitant]
     Active Substance: PREDNISOLONE
     Dosage: 1 DF, QD
  9. THROUGH [Concomitant]
     Dosage: 3 DF, DAILY(QN)

REACTIONS (5)
  - Monocyte count increased [Unknown]
  - Neutrophil count decreased [Unknown]
  - White blood cell count decreased [Unknown]
  - Platelet count decreased [Unknown]
  - Lymphocyte count increased [Unknown]

NARRATIVE: CASE EVENT DATE: 20181105
